FAERS Safety Report 25283477 (Version 1)
Quarter: 2025Q2

REPORT INFORMATION
  Report Type: Spontaneous
  Country: NO (occurrence: NO)
  Receive Date: 20250508
  Receipt Date: 20250508
  Transmission Date: 20250717
  Serious: Yes (Other)
  Sender: FRESENIUS KABI
  Company Number: None

PATIENT
  Age: 29 Year
  Sex: Male

DRUGS (1)
  1. ROPIVACAINE [Suspect]
     Active Substance: ROPIVACAINE
     Indication: Anaesthesia
     Route: 042
     Dates: start: 20250426, end: 20250426

REACTIONS (4)
  - Anaphylactic reaction [Unknown]
  - Erythema [Unknown]
  - Urticaria [Unknown]
  - Hypotension [Unknown]

NARRATIVE: CASE EVENT DATE: 20250426
